FAERS Safety Report 16934292 (Version 2)
Quarter: 2019Q4

REPORT INFORMATION
  Report Type: Spontaneous
  Country: US (occurrence: BA)
  Receive Date: 20191018
  Receipt Date: 20191104
  Transmission Date: 20200122
  Serious: Yes (Other)
  Sender: FDA-Public Use
  Company Number: US-JNJFOC-20191024263

PATIENT
  Age: 67 Year
  Sex: Male

DRUGS (4)
  1. ATORVASTATIN [Concomitant]
     Active Substance: ATORVASTATIN
  2. METOPROLOL. [Concomitant]
     Active Substance: METOPROLOL
  3. RIVAROXABAN [Suspect]
     Active Substance: RIVAROXABAN
     Indication: ATRIAL FIBRILLATION
     Dosage: XARELTO 20 MG
     Route: 048
  4. AMIODARONE [Concomitant]
     Active Substance: AMIODARONE

REACTIONS (2)
  - Gastrointestinal haemorrhage [Unknown]
  - Adenocarcinoma of colon [Unknown]
